FAERS Safety Report 7309262-4 (Version None)
Quarter: 2011Q1

REPORT INFORMATION
  Report Type: 
  Country: None (occurrence: None)
  Receive Date: 20110223
  Receipt Date: 20110215
  Transmission Date: 20110831
  Serious: Yes (Other)
  Sender: FDA-Public Use
  Company Number: US-PFIZER INC-2010160537

PATIENT
  Sex: Female

DRUGS (8)
  1. COMBIVENT [Suspect]
     Indication: CHRONIC OBSTRUCTIVE PULMONARY DISEASE
  2. OSCAL 500-D [Concomitant]
     Dosage: UNK
  3. METOPROLOL [Concomitant]
     Indication: HYPERTENSION
     Dosage: UNK
  4. IBUPROFEN [Concomitant]
     Dosage: UNK
  5. LIPITOR [Suspect]
     Indication: HYPOLIPIDAEMIA
     Dosage: 20 MG, DAILY
     Route: 048
     Dates: start: 20101001, end: 20101101
  6. QVAR 40 [Concomitant]
     Indication: CHRONIC OBSTRUCTIVE PULMONARY DISEASE
     Dosage: UNK
     Route: 045
  7. ALBUTEROL [Concomitant]
     Indication: CHRONIC OBSTRUCTIVE PULMONARY DISEASE
     Dosage: UNK
     Route: 045
  8. FUROSEMIDE [Concomitant]
     Indication: HYPERTENSION
     Dosage: UNK

REACTIONS (5)
  - OEDEMA PERIPHERAL [None]
  - HEADACHE [None]
  - PAIN IN EXTREMITY [None]
  - MYALGIA [None]
  - MALAISE [None]
